FAERS Safety Report 18211948 (Version 5)
Quarter: 2022Q3

REPORT INFORMATION
  Report Type: Spontaneous
  Country: JP (occurrence: JP)
  Receive Date: 20200831
  Receipt Date: 20220713
  Transmission Date: 20221027
  Serious: Yes (Hospitalization)
  Sender: FDA-Public Use
  Company Number: JP-GSKNCCC-CASE-01017426_AE-33193

PATIENT

DRUGS (6)
  1. VALTREX [Suspect]
     Active Substance: VALACYCLOVIR HYDROCHLORIDE
     Indication: Herpes zoster
     Dosage: 1000 MG, TID
     Route: 048
     Dates: start: 20200819, end: 20200823
  2. BAYASPIRIN TABLETS [Concomitant]
     Indication: Angina pectoris
     Dosage: 100 MG
     Route: 048
  3. ZETIA TABLETS [Concomitant]
     Indication: Hyperlipidaemia
     Dosage: 10 MG
     Route: 048
  4. MICARDIS [Concomitant]
     Active Substance: TELMISARTAN
     Indication: Hypertension
     Dosage: 20 MG
     Route: 048
  5. EDIROL CAPSULE [Concomitant]
     Indication: Osteoporosis
     Dosage: 0.75 ?G
     Route: 048
  6. LANSOPRAZOLE [Concomitant]
     Active Substance: LANSOPRAZOLE
     Dosage: 15 MG
     Route: 048

REACTIONS (6)
  - Renal disorder [Recovering/Resolving]
  - Physical deconditioning [Recovered/Resolved]
  - Decreased appetite [Recovered/Resolved]
  - Dehydration [Recovered/Resolved]
  - Prescribed overdose [Unknown]
  - Inappropriate schedule of product administration [Unknown]

NARRATIVE: CASE EVENT DATE: 20200819
